FAERS Safety Report 5817070-6 (Version None)
Quarter: 2008Q3

REPORT INFORMATION
  Report Type: 
  Country: None (occurrence: None)
  Receive Date: 20080722
  Receipt Date: 20080715
  Transmission Date: 20090109
  Serious: Yes (Hospitalization)
  Sender: FDA-Public Use
  Company Number: US-AMGEN-QUU295030

PATIENT
  Sex: Female

DRUGS (1)
  1. ENBREL [Suspect]
     Indication: RHEUMATOID ARTHRITIS
     Route: 058
     Dates: start: 20000605

REACTIONS (8)
  - ARTHRITIS [None]
  - CLOSTRIDIUM DIFFICILE COLITIS [None]
  - HEADACHE [None]
  - JOINT DISLOCATION [None]
  - POLLAKIURIA [None]
  - RENAL IMPAIRMENT [None]
  - URINARY TRACT INFECTION [None]
  - VISION BLURRED [None]
